FAERS Safety Report 11877789 (Version 1)
Quarter: 2015Q4

REPORT INFORMATION
  Report Type: Spontaneous
  Country: US (occurrence: US)
  Receive Date: 20151230
  Receipt Date: 20151230
  Transmission Date: 20160305
  Serious: Yes (Other)
  Sender: FDA-Public Use
  Company Number: US-BEH-2015057102

PATIENT
  Sex: Female
  Weight: 60 kg

DRUGS (16)
  1. EPIPEN [Concomitant]
     Active Substance: EPINEPHRINE
  2. CALCIUM [Concomitant]
     Active Substance: CALCIUM
  3. ACETAMINOPHEN. [Concomitant]
     Active Substance: ACETAMINOPHEN
  4. HIZENTRA [Suspect]
     Active Substance: HUMAN IMMUNOGLOBULIN G
     Indication: IMMUNODEFICIENCY COMMON VARIABLE
     Dosage: AS DIRECTED
     Route: 058
  5. ZYRTEC [Concomitant]
     Active Substance: CETIRIZINE HYDROCHLORIDE
  6. IMITREX [Concomitant]
     Active Substance: SUMATRIPTAN\SUMATRIPTAN SUCCINATE
  7. AMITRIPTYLINE [Concomitant]
     Active Substance: AMITRIPTYLINE
  8. SINGULAIR [Concomitant]
     Active Substance: MONTELUKAST SODIUM
  9. LEVOTHYROXINE. [Concomitant]
     Active Substance: LEVOTHYROXINE
  10. PLAQUENIL [Concomitant]
     Active Substance: HYDROXYCHLOROQUINE SULFATE
  11. DIPHENHYDRAMINE. [Concomitant]
     Active Substance: DIPHENHYDRAMINE
  12. DYMISTA [Concomitant]
     Active Substance: AZELASTINE HYDROCHLORIDE\FLUTICASONE PROPIONATE
  13. PEPCID [Concomitant]
     Active Substance: FAMOTIDINE
  14. PRILOSEC [Concomitant]
     Active Substance: OMEPRAZOLE MAGNESIUM
  15. LIDOCAINE. [Concomitant]
     Active Substance: LIDOCAINE
  16. PROAIR HFA [Concomitant]
     Active Substance: ALBUTEROL SULFATE

REACTIONS (3)
  - Ear infection [Unknown]
  - Lung infection [Unknown]
  - Sinusitis [Unknown]

NARRATIVE: CASE EVENT DATE: 2015
